FAERS Safety Report 10213672 (Version 1)
Quarter: 2014Q2

REPORT INFORMATION
  Report Type: Spontaneous
  Country: TR (occurrence: None)
  Receive Date: 20140530
  Receipt Date: 20140530
  Transmission Date: 20141212
  Serious: Yes (Life-Threatening, Hospitalization)
  Sender: FDA-Public Use
  Company Number: 2014P1004341

PATIENT
  Age: 17 Year
  Sex: Female

DRUGS (1)
  1. RISPERIDONE [Suspect]
     Route: 048

REACTIONS (10)
  - Overdose [None]
  - Suicide attempt [None]
  - Swollen tongue [None]
  - Dyspnoea [None]
  - Angioedema [None]
  - Stridor [None]
  - Sinus tachycardia [None]
  - Dysphagia [None]
  - Aphasia [None]
  - Dystonia [None]
